FAERS Safety Report 5599431-6 (Version None)
Quarter: 2008Q1

REPORT INFORMATION
  Report Type: 
  Country: None (occurrence: None)
  Receive Date: 20080122
  Receipt Date: 20080110
  Transmission Date: 20080703
  Serious: Yes (Other)
  Sender: FDA-Public Use
  Company Number: GB-PFIZER INC-2008003974

PATIENT
  Age: 44 Year
  Sex: Female
  Weight: 58 kg

DRUGS (6)
  1. SERTRALINE [Suspect]
     Route: 048
  2. VENLAFAXINE HCL [Suspect]
     Route: 048
     Dates: start: 20071108, end: 20071116
  3. DIAZEPAM [Concomitant]
     Route: 048
     Dates: start: 20071123, end: 20071214
  4. LORAZEPAM [Concomitant]
     Route: 048
     Dates: start: 20071119, end: 20071123
  5. NITRAZEPAM [Concomitant]
     Route: 048
     Dates: start: 20071108, end: 20071119
  6. ZOPICLONE [Concomitant]
     Route: 048
     Dates: start: 20071119, end: 20071123

REACTIONS (5)
  - ATAXIA [None]
  - COGNITIVE DISORDER [None]
  - COORDINATION ABNORMAL [None]
  - GAIT DISTURBANCE [None]
  - TREMOR [None]
